FAERS Safety Report 9143669 (Version 2)
Quarter: 2013Q4

REPORT INFORMATION
  Report Type: Spontaneous
  Country: US (occurrence: US)
  Receive Date: 20130306
  Receipt Date: 20131101
  Transmission Date: 20140711
  Serious: Yes (Other)
  Sender: FDA-Public Use
  Company Number: US-ROCHE-1197983

PATIENT
  Age: 18 Year
  Sex: Female

DRUGS (4)
  1. ACCUTANE [Suspect]
     Indication: ACNE
     Route: 048
     Dates: start: 20071022, end: 200805
  2. ACCUTANE [Suspect]
     Route: 065
     Dates: end: 200807
  3. AMNESTEEM [Suspect]
     Indication: PRODUCT USED FOR UNKNOWN INDICATION
     Route: 065
     Dates: start: 200710, end: 200807
  4. SOTRET [Suspect]
     Indication: PRODUCT USED FOR UNKNOWN INDICATION
     Route: 065
     Dates: start: 200710, end: 200807

REACTIONS (8)
  - Gastrointestinal disorder [Unknown]
  - Emotional distress [Unknown]
  - Lip dry [Unknown]
  - Dry skin [Unknown]
  - Headache [Unknown]
  - Abdominal pain [Unknown]
  - Xerosis [Unknown]
  - Irritable bowel syndrome [Unknown]
